FAERS Safety Report 20969243 (Version 12)
Quarter: 2022Q4

REPORT INFORMATION
  Report Type: Report from Study
  Country: CN (occurrence: CN)
  Receive Date: 20220616
  Receipt Date: 20221222
  Transmission Date: 20230112
  Serious: Yes (Hospitalization, Other)
  Sender: FDA-Public Use
  Company Number: CN-ABBVIE-22K-035-4428383-00

PATIENT
  Age: 54 Year
  Sex: Male

DRUGS (18)
  1. VENETOCLAX [Suspect]
     Active Substance: VENETOCLAX
     Indication: Myelodysplastic syndrome
     Dosage: DAYS 1 - 14 OF EACH 28-DAY CYCLE
     Route: 048
     Dates: start: 20220526, end: 20220608
  2. VENETOCLAX [Suspect]
     Active Substance: VENETOCLAX
     Indication: Myelodysplastic syndrome
     Dosage: DAYS 1 - 14 OF EACH 28-DAY CYCLE
     Route: 048
     Dates: start: 20220701, end: 20220714
  3. VENETOCLAX [Suspect]
     Active Substance: VENETOCLAX
     Indication: Myelodysplastic syndrome
     Dosage: DAYS 1 - 14 OF EACH 28-DAY CYCLE
     Route: 048
     Dates: start: 20220816
  4. CLOPIDOGREL BISULFATE TABLETS [Concomitant]
     Indication: Cardiovascular event prophylaxis
     Route: 048
     Dates: start: 20220216
  5. SODIUM RABEPRAZOLE ENTERIC-COATED TABLETS [Concomitant]
     Indication: Cardiovascular event prophylaxis
     Route: 048
     Dates: start: 20220216
  6. ASPIRIN [Concomitant]
     Active Substance: ASPIRIN
     Indication: Cardiovascular event prophylaxis
     Route: 048
     Dates: start: 20220216, end: 20220709
  7. ROSUVASTATIN CALCIUM TABLES [Concomitant]
     Indication: Mineral supplementation
     Route: 048
     Dates: start: 20220216, end: 20220819
  8. SODIUM BICARBONATE [Concomitant]
     Active Substance: SODIUM BICARBONATE
     Indication: Therapeutic gargle
     Dosage: GARGLE
     Dates: start: 20220526, end: 20220601
  9. SODIUM BICARBONATE [Concomitant]
     Active Substance: SODIUM BICARBONATE
     Indication: Therapeutic gargle
     Route: 048
     Dates: start: 20220526
  10. SODIUM BICARBONATE [Concomitant]
     Active Substance: SODIUM BICARBONATE
     Indication: Therapeutic gargle
     Dosage: GARGLE
     Dates: start: 20220622, end: 20220725
  11. REDUCED GLUTATHIONE FOR INJECTION [Concomitant]
     Indication: Antiviral prophylaxis
     Route: 042
     Dates: start: 20220526
  12. CEFODIZIME SODIUM FOR INJECTION [Concomitant]
     Indication: Infection prophylaxis
     Route: 042
     Dates: start: 20220526, end: 20220601
  13. DOLASETRON MESYLATE INJECTION [Concomitant]
     Indication: Prophylaxis of nausea and vomiting
     Route: 042
     Dates: start: 20220526, end: 20220601
  14. MONTMORILLONITE POWDER [Concomitant]
     Indication: Diarrhoea
     Dosage: 1 BAG
     Route: 048
     Dates: start: 20220526, end: 20220601
  15. LIVE COMBINED BIFIDOBACTERIUM LACTOBACILLUS AND ENTEROCOCCUS CAPSULES [Concomitant]
     Indication: Gastrointestinal disorder prophylaxis
     Route: 048
     Dates: start: 20220526
  16. AZACITIDINE [Suspect]
     Active Substance: AZACITIDINE
     Indication: Myelodysplastic syndrome
     Dosage: 7 DAYS WITHIN THE FIRST 9 CALENDAR DAYS OF EACH 28-DAY CYCLE
     Route: 058
     Dates: start: 20220526, end: 20220601
  17. AZACITIDINE [Suspect]
     Active Substance: AZACITIDINE
     Indication: Myelodysplastic syndrome
     Dosage: 7 DAYS WITHIN THE FIRST 9 CALENDAR DAYS OF EACH 28-DAY CYCLE
     Route: 058
     Dates: start: 20220701, end: 20220707
  18. AZACITIDINE [Suspect]
     Active Substance: AZACITIDINE
     Indication: Myelodysplastic syndrome
     Dosage: 7 DAYS WITHIN THE FIRST 9 CALENDAR DAYS OF EACH 28-DAY CYCLE
     Route: 058
     Dates: start: 20220816

REACTIONS (3)
  - White blood cell count decreased [Not Recovered/Not Resolved]
  - Gastrointestinal haemorrhage [Recovered/Resolved]
  - Gastrointestinal infection [Recovered/Resolved]

NARRATIVE: CASE EVENT DATE: 20220609
